FAERS Safety Report 6194358-3 (Version None)
Quarter: 2009Q2

REPORT INFORMATION
  Report Type: 
  Country: None (occurrence: None)
  Receive Date: 20090519
  Receipt Date: 20090511
  Transmission Date: 20091009
  Serious: Yes (Hospitalization)
  Sender: FDA-Public Use
  Company Number: US-ASTRAZENECA-2009UW11982

PATIENT
  Sex: Female

DRUGS (12)
  1. CRESTOR [Suspect]
     Route: 048
     Dates: start: 20080901
  2. CRESTOR [Suspect]
     Dosage: 1/4 20 MG TABLET = 5 MG
     Route: 048
     Dates: start: 20090330
  3. PLAVIX [Concomitant]
  4. ASPIRIN [Concomitant]
  5. ISOSORBIDE [Concomitant]
  6. NITROGLYCERIN [Concomitant]
  7. HYDROCHLOROTHIAZIDE [Concomitant]
  8. TRICOR [Concomitant]
  9. DIGOXIN [Concomitant]
  10. DIOVAN [Concomitant]
  11. RANEXA [Concomitant]
  12. ZETIA [Concomitant]

REACTIONS (5)
  - ABDOMINAL PAIN [None]
  - ARTHRALGIA [None]
  - HEPATIC ENZYME INCREASED [None]
  - HEPATOMEGALY [None]
  - VOMITING [None]
